APPROVED DRUG PRODUCT: GABAPENTIN
Active Ingredient: GABAPENTIN
Strength: 300MG
Dosage Form/Route: CAPSULE;ORAL
Application: A090007 | Product #002 | TE Code: AB
Applicant: MARKSANS PHARMA LTD
Approved: Jul 21, 2011 | RLD: No | RS: No | Type: RX